FAERS Safety Report 7233324-3 (Version None)
Quarter: 2011Q1

REPORT INFORMATION
  Report Type: 
  Country: None (occurrence: None)
  Receive Date: 20110119
  Receipt Date: 20110114
  Transmission Date: 20110831
  Serious: Yes (Hospitalization)
  Sender: FDA-Public Use
  Company Number: US-ELI_LILLY_AND_COMPANY-US201009003031

PATIENT
  Sex: Female
  Weight: 100.5 kg

DRUGS (9)
  1. DULOXETINE HYDROCHLORIDE [Suspect]
     Indication: MAJOR DEPRESSION
     Dosage: UNK, DAILY (1/D)
     Route: 048
     Dates: start: 20100807
  2. BYETTA [Concomitant]
     Dosage: UNK, 2/D
     Route: 058
     Dates: start: 20080110
  3. SIMVASTATIN [Concomitant]
     Indication: HYPERCHOLESTEROLAEMIA
     Dosage: 80 MG, DAILY (1/D)
     Route: 048
     Dates: start: 20100401
  4. GLIPIZIDE [Concomitant]
     Indication: TYPE 2 DIABETES MELLITUS
     Dosage: 7.5 MG, DAILY (1/D)
     Route: 048
     Dates: start: 20090601
  5. ALLEGRA D 24 HOUR [Concomitant]
     Indication: HYPERSENSITIVITY
     Dosage: 180 MG, AS NEEDED
     Dates: start: 20011001
  6. METFORMIN [Concomitant]
     Indication: TYPE 2 DIABETES MELLITUS
     Dosage: 1000 MG, 2/D
     Route: 048
     Dates: start: 20070106
  7. ALBUTEROL [Concomitant]
     Indication: ASTHMA
     Route: 055
     Dates: start: 19910101
  8. LISINOPRIL [Concomitant]
     Indication: HYPERTENSION
     Dosage: 10 MG, DAILY (1/D)
     Route: 048
     Dates: start: 20040101
  9. METFORMIN [Concomitant]
     Dosage: 1000 MG, 2/D
     Route: 065
     Dates: start: 20100912

REACTIONS (1)
  - NON-CARDIAC CHEST PAIN [None]
